FAERS Safety Report 7553783-6 (Version None)
Quarter: 2011Q2

REPORT INFORMATION
  Report Type: 
  Country: None (occurrence: None)
  Receive Date: 20110614
  Receipt Date: 20110614
  Transmission Date: 20111010
  Serious: Yes (Death)
  Sender: FDA-Public Use
  Company Number: None

PATIENT
  Age: 44 Year
  Sex: Male
  Weight: 92.9874 kg

DRUGS (5)
  1. NORDIAZEPAM [Concomitant]
  2. SERTRALINE HYDROCHLORIDE [Suspect]
     Indication: DEPRESSION
     Dosage: 2 QD PO
     Route: 048
  3. QUETIAPINE [Concomitant]
  4. ACETAMINOPHEN AND TRAMADOL HCL [Suspect]
     Dosage: 1-2 Q6HR PO
     Route: 048
  5. CHLORDIAZEPOXIDE [Concomitant]

REACTIONS (3)
  - UNEVALUABLE EVENT [None]
  - ALCOHOLIC LIVER DISEASE [None]
  - HYPERTENSIVE HEART DISEASE [None]
